FAERS Safety Report 6500649-6 (Version None)
Quarter: 2009Q4

REPORT INFORMATION
  Report Type: 
  Country: None (occurrence: None)
  Receive Date: 20091216
  Receipt Date: 20081218
  Transmission Date: 20100525
  Serious: No
  Sender: FDA-Public Use
  Company Number: A0761042A

PATIENT
  Age: 24 Year
  Sex: Male

DRUGS (1)
  1. COMMIT [Suspect]
     Dates: start: 20081216, end: 20081217

REACTIONS (4)
  - ANGER [None]
  - ARTHRALGIA [None]
  - IRRITABILITY [None]
  - MYALGIA [None]
